FAERS Safety Report 5183825-7 (Version None)
Quarter: 2006Q4

REPORT INFORMATION
  Report Type: 
  Country: None (occurrence: None)
  Receive Date: 20061220
  Receipt Date: 20061218
  Transmission Date: 20070319
  Serious: Yes (Congenital Anomaly)
  Sender: FDA-Public Use
  Company Number: US-GLAXOSMITHKLINE-A0632042A

PATIENT

DRUGS (5)
  1. EPIVIR [Suspect]
     Indication: HIV INFECTION
     Dosage: 600MG PER DAY
     Dates: start: 20060420, end: 20060624
  2. ZERIT [Concomitant]
     Indication: HIV INFECTION
     Dosage: 80MG PER DAY
     Dates: start: 20060420, end: 20060627
  3. SUSTIVA [Concomitant]
     Indication: HIV INFECTION
     Dosage: 600MG PER DAY
     Dates: start: 20060420, end: 20060627
  4. REYATAZ [Concomitant]
     Dosage: 300MG PER DAY
     Dates: start: 20060627
  5. NORVIR [Concomitant]
     Dosage: 100MG PER DAY
     Dates: start: 20060627

REACTIONS (2)
  - CONGENITAL HYDRONEPHROSIS [None]
  - DRUG EXPOSURE DURING PREGNANCY [None]
